FAERS Safety Report 10755898 (Version 3)
Quarter: 2015Q2

REPORT INFORMATION
  Report Type: Spontaneous
  Country: US (occurrence: US)
  Receive Date: 20150202
  Receipt Date: 20150424
  Transmission Date: 20150821
  Serious: Yes (Death, Hospitalization, Other)
  Sender: FDA-Public Use
  Company Number: US-009507513-1502USA000551

PATIENT
  Sex: Male
  Weight: 100.23 kg

DRUGS (2)
  1. JANUVIA [Suspect]
     Active Substance: SITAGLIPTIN PHOSPHATE
     Indication: TYPE 2 DIABETES MELLITUS
     Dosage: 100 MG, QD
     Route: 048
     Dates: end: 20070716
  2. BYETTA [Suspect]
     Active Substance: EXENATIDE
     Dosage: UNK
     Dates: start: 20070713

REACTIONS (26)
  - Hypertension [Unknown]
  - Metastases to liver [Unknown]
  - Diverticulum intestinal [Unknown]
  - Constipation [Unknown]
  - Metastases to lung [Unknown]
  - Hepatic mass [Unknown]
  - Liver function test abnormal [Unknown]
  - Drug ineffective [Unknown]
  - Colon cancer [Unknown]
  - Hyperlipidaemia [Unknown]
  - Stasis dermatitis [Unknown]
  - Renal cyst [Unknown]
  - Coronary arterial stent insertion [Unknown]
  - Biliary dilatation [Unknown]
  - Pyelocaliectasis [Unknown]
  - Myocardial infarction [Unknown]
  - Angina pectoris [Unknown]
  - Aortic stenosis [Unknown]
  - Blood glucose increased [Not Recovered/Not Resolved]
  - Pulmonary mass [Unknown]
  - Prostatomegaly [Unknown]
  - Bile duct stent insertion [Unknown]
  - Prostatic calcification [Unknown]
  - Pancreatic carcinoma metastatic [Fatal]
  - Back pain [Unknown]
  - Adrenal mass [Unknown]

NARRATIVE: CASE EVENT DATE: 200702
